FAERS Safety Report 9286492 (Version 1)
Quarter: 2013Q2

REPORT INFORMATION
  Report Type: Spontaneous
  Country: GB (occurrence: GB)
  Receive Date: 20130513
  Receipt Date: 20130513
  Transmission Date: 20140414
  Serious: Yes (Other)
  Sender: FDA-Public Use
  Company Number: GB-BRISTOL-MYERS SQUIBB COMPANY-18855650

PATIENT
  Age: 57 Year
  Sex: Male
  Weight: 74.5 kg

DRUGS (5)
  1. REYATAZ [Suspect]
     Indication: RETROVIRAL INFECTION
     Route: 048
     Dates: start: 20080717, end: 20130415
  2. TRUVADA [Concomitant]
  3. RITONAVIR [Concomitant]
  4. RAMIPRIL [Concomitant]
  5. VITAMIN D [Concomitant]

REACTIONS (2)
  - Nephrolithiasis [Not Recovered/Not Resolved]
  - Proteinuria [Unknown]
